FAERS Safety Report 17689769 (Version 1)
Quarter: 2020Q2

REPORT INFORMATION
  Report Type: Spontaneous
  Country: US (occurrence: US)
  Receive Date: 20200421
  Receipt Date: 20200421
  Transmission Date: 20200714
  Serious: Yes (Other)
  Sender: FDA-Public Use
  Company Number: US-ASTRAZENECA-2020SE50900

PATIENT
  Sex: Female
  Weight: 64 kg

DRUGS (37)
  1. OMEPRAZOLE. [Suspect]
     Active Substance: OMEPRAZOLE
     Indication: GASTROOESOPHAGEAL REFLUX DISEASE
     Route: 048
     Dates: start: 20130816
  2. PREVACID [Suspect]
     Active Substance: LANSOPRAZOLE
     Indication: GASTROOESOPHAGEAL REFLUX DISEASE
     Route: 048
     Dates: start: 20090608
  3. ONDANSETRON [Concomitant]
     Active Substance: ONDANSETRON
     Indication: NAUSEA
     Dates: start: 20140913, end: 20150523
  4. GABAPENTIN. [Concomitant]
     Active Substance: GABAPENTIN
  5. ABILIFY [Concomitant]
     Active Substance: ARIPIPRAZOLE
  6. PREVACID [Suspect]
     Active Substance: LANSOPRAZOLE
     Indication: GASTROOESOPHAGEAL REFLUX DISEASE
     Dosage: LANSPRAZOLE
     Route: 065
     Dates: start: 20090608, end: 20101122
  7. LIPITOR [Concomitant]
     Active Substance: ATORVASTATIN CALCIUM
     Indication: BLOOD CHOLESTEROL INCREASED
     Dates: start: 20100129, end: 20100701
  8. METAXALONE. [Concomitant]
     Active Substance: METAXALONE
  9. CIPROFLOXACIN. [Concomitant]
     Active Substance: CIPROFLOXACIN
  10. PROMETHAZINE [Concomitant]
     Active Substance: PROMETHAZINE HYDROCHLORIDE
  11. PREVACID [Suspect]
     Active Substance: LANSOPRAZOLE
     Indication: GASTROOESOPHAGEAL REFLUX DISEASE
     Route: 065
     Dates: start: 200001, end: 201406
  12. LORAZEPAM. [Concomitant]
     Active Substance: LORAZEPAM
  13. SUCRALFATE. [Concomitant]
     Active Substance: SUCRALFATE
  14. FUROSEMIDE. [Concomitant]
     Active Substance: FUROSEMIDE
  15. PREVACID [Suspect]
     Active Substance: LANSOPRAZOLE
     Indication: GASTROOESOPHAGEAL REFLUX DISEASE
     Dosage: LANSPRAZOLE
     Route: 065
     Dates: start: 20130807, end: 20141202
  16. ATORVASTATIN [Concomitant]
     Active Substance: ATORVASTATIN
     Indication: BLOOD CHOLESTEROL INCREASED
     Dates: start: 20130807, end: 20150311
  17. DICYCLOMINE [Concomitant]
     Active Substance: DICYCLOMINE HYDROCHLORIDE
     Indication: ABDOMINAL PAIN UPPER
     Dates: start: 20100701, end: 20150311
  18. HUMULIN NOS [Concomitant]
     Active Substance: INSULIN HUMAN
     Indication: DIABETES MELLITUS
     Dates: start: 20100608, end: 20100730
  19. CARVEDILOL. [Concomitant]
     Active Substance: CARVEDILOL
  20. BENZONATATE. [Concomitant]
     Active Substance: BENZONATATE
  21. AZITHROMYCIN ANHYDROUS. [Concomitant]
     Active Substance: AZITHROMYCIN ANHYDROUS
  22. OMEPRAZOLE. [Suspect]
     Active Substance: OMEPRAZOLE
     Indication: GASTROOESOPHAGEAL REFLUX DISEASE
     Route: 048
     Dates: start: 20130816, end: 20130830
  23. VITAMIN D [Concomitant]
     Active Substance: VITAMIN D NOS
     Indication: SUPPLEMENTATION THERAPY
     Dates: start: 20150327, end: 20150429
  24. MELATONIN [Concomitant]
     Active Substance: MELATONIN
  25. LANTUS [Concomitant]
     Active Substance: INSULIN GLARGINE
  26. TRIAMETERENE [Concomitant]
  27. AVINZA [Concomitant]
     Active Substance: MORPHINE SULFATE
     Indication: PAIN
     Dates: start: 20080603, end: 20110722
  28. TUMS [Concomitant]
     Active Substance: CALCIUM CARBONATE
     Dosage: OTC-2-4 TABLETS AS NEEDED
     Dates: start: 2016
  29. LEVOTHYROXINE. [Concomitant]
     Active Substance: LEVOTHYROXINE
  30. TOPIRAMATE. [Concomitant]
     Active Substance: TOPIRAMATE
  31. PREDNISONE. [Concomitant]
     Active Substance: PREDNISONE
  32. ONDANSETRON [Concomitant]
     Active Substance: ONDANSETRON
     Indication: VOMITING
     Dates: start: 20140913, end: 20150523
  33. AMITRIPTYLINE [Concomitant]
     Active Substance: AMITRIPTYLINE
  34. MOVANTIK [Concomitant]
     Active Substance: NALOXEGOL OXALATE
  35. GLIPIZIDE. [Concomitant]
     Active Substance: GLIPIZIDE
  36. VALACYCLOVIR [Concomitant]
     Active Substance: VALACYCLOVIR HYDROCHLORIDE
  37. MELOXICAM. [Concomitant]
     Active Substance: MELOXICAM

REACTIONS (2)
  - Acute kidney injury [Unknown]
  - Chronic kidney disease [Not Recovered/Not Resolved]
